FAERS Safety Report 23240456 (Version 1)
Quarter: 2023Q4

REPORT INFORMATION
  Report Type: Spontaneous
  Country: US (occurrence: US)
  Receive Date: 20231129
  Receipt Date: 20231129
  Transmission Date: 20240110
  Serious: No
  Sender: FDA-Public Use
  Company Number: US-SA-SAC20231120001551

PATIENT
  Sex: Male

DRUGS (3)
  1. DUPIXENT [Suspect]
     Active Substance: DUPILUMAB
     Indication: Nasal polyps
     Dosage: 300 MG, QOW
     Route: 058
  2. HYDROCODONE [Concomitant]
     Active Substance: HYDROCODONE
  3. LISINOPRIL [Concomitant]
     Active Substance: LISINOPRIL

REACTIONS (6)
  - Rhinorrhoea [Not Recovered/Not Resolved]
  - Sneezing [Unknown]
  - Eye discharge [Unknown]
  - Dry eye [Unknown]
  - Inappropriate schedule of product administration [Unknown]
  - Product preparation error [Unknown]
